FAERS Safety Report 7003936-0 (Version None)
Quarter: 2010Q3

REPORT INFORMATION
  Report Type: 
  Country: None (occurrence: None)
  Receive Date: 20100920
  Receipt Date: 20091227
  Transmission Date: 20110219
  Serious: No
  Sender: FDA-Public Use
  Company Number: US-WYE-H12812709

PATIENT
  Sex: Female

DRUGS (1)
  1. PRISTIQ [Suspect]
     Route: 048
     Dates: start: 20070101

REACTIONS (2)
  - LIBIDO DECREASED [None]
  - LOSS OF LIBIDO [None]
